FAERS Safety Report 24367041 (Version 1)
Quarter: 2024Q3

REPORT INFORMATION
  Report Type: Spontaneous
  Country: IT (occurrence: IT)
  Receive Date: 20240926
  Receipt Date: 20240926
  Transmission Date: 20241016
  Serious: Yes (Death, Other)
  Sender: Haleon PLC
  Company Number: IT-HALEON-2197700

PATIENT
  Age: 23 Year
  Sex: Male

DRUGS (1)
  1. VOLTAREN [Suspect]
     Active Substance: DICLOFENAC SODIUM
     Indication: Myocardial infarction

REACTIONS (2)
  - Death [Fatal]
  - Off label use [Unknown]
